FAERS Safety Report 8186314-0 (Version None)
Quarter: 2012Q1

REPORT INFORMATION
  Report Type: 
  Country: None (occurrence: None)
  Receive Date: 20120306
  Receipt Date: 20120227
  Transmission Date: 20120608
  Serious: Yes (Hospitalization, Other)
  Sender: FDA-Public Use
  Company Number: US-BAYER-2011-033035

PATIENT
  Age: 35 Year
  Sex: Female
  Weight: 73 kg

DRUGS (5)
  1. YAZ [Suspect]
     Indication: PREMENSTRUAL SYNDROME
     Dosage: UNK
     Dates: start: 20080601, end: 20090901
  2. EPHEDRA [Concomitant]
     Indication: WEIGHT DECREASED
     Dosage: 700 MG, BID
  3. YASMIN [Suspect]
     Indication: PREMENSTRUAL SYNDROME
     Dosage: UNK
     Dates: start: 20080601, end: 20090901
  4. CAFFEINE [Concomitant]
     Indication: WEIGHT DECREASED
     Dosage: 2 DF, QD
  5. ALLEGRA-D 12 HOUR [Concomitant]

REACTIONS (7)
  - CEREBROVASCULAR ACCIDENT [None]
  - PAIN [None]
  - COGNITIVE DISORDER [None]
  - CEREBRAL INFARCTION [None]
  - LEARNING DISORDER [None]
  - MENTAL DISORDER [None]
  - FEAR [None]
